FAERS Safety Report 21758481 (Version 1)
Quarter: 2022Q4

REPORT INFORMATION
  Report Type: Spontaneous
  Country: US (occurrence: None)
  Receive Date: 20221221
  Receipt Date: 20221221
  Transmission Date: 20230112
  Serious: No
  Sender: FDA-Public Use
  Company Number: US-ROCHE-3057043

PATIENT
  Sex: Male
  Weight: 63.560 kg

DRUGS (4)
  1. GAZYVA [Suspect]
     Active Substance: OBINUTUZUMAB
     Indication: B-cell lymphoma
     Dosage: ADMINISTER 100 MG INTRAVENOUSLY ON DAY 1 AND 900 MG ON DAY 2. 1000 MG INTRAVENOUSLY ON DAY 8, 15 EVE
     Route: 042
     Dates: start: 20220314
  2. GAZYVA [Suspect]
     Active Substance: OBINUTUZUMAB
     Indication: Nodule
  3. VENCLEXTA [Concomitant]
     Active Substance: VENETOCLAX
     Indication: B-cell lymphoma
     Dosage: TAKE TWO 10MG TABLETS EACH DAY FOR ONE WEEK. THEN TITRATE EACH WEEK UP TO 200MG IN WEEK 4
     Route: 048
     Dates: start: 20220314
  4. VENCLEXTA [Concomitant]
     Active Substance: VENETOCLAX
     Indication: Nodule

REACTIONS (1)
  - Eye inflammation [Unknown]
